FAERS Safety Report 10932025 (Version 2)
Quarter: 2015Q3

REPORT INFORMATION
  Report Type: Report from Study
  Country: IT (occurrence: IT)
  Receive Date: 20150319
  Receipt Date: 20150713
  Transmission Date: 20151125
  Serious: Yes (Hospitalization)
  Sender: FDA-Public Use
  Company Number: PHHO2015IT004088

PATIENT
  Age: 79 Year
  Sex: Female
  Weight: 65 kg

DRUGS (1)
  1. AMN107 [Suspect]
     Active Substance: NILOTINIB
     Indication: CHRONIC MYELOID LEUKAEMIA
     Dosage: 400 MG, OAD
     Route: 048
     Dates: start: 20071003, end: 20141023

REACTIONS (2)
  - Coronary artery disease [Recovered/Resolved]
  - Mitral valve incompetence [Recovered/Resolved]

NARRATIVE: CASE EVENT DATE: 20141022
